FAERS Safety Report 15917765 (Version 2)
Quarter: 2019Q1

REPORT INFORMATION
  Report Type: Spontaneous
  Country: US (occurrence: US)
  Receive Date: 20190205
  Receipt Date: 20190321
  Transmission Date: 20190417
  Serious: Yes (Other)
  Sender: FDA-Public Use
  Company Number: US-GLAXOSMITHKLINE-US2019018941

PATIENT
  Sex: Male

DRUGS (1)
  1. SENSODYNE PRONAMEL FRESH BREATH [Suspect]
     Active Substance: POTASSIUM NITRATE\SODIUM FLUORIDE
     Indication: PRODUCT USED FOR UNKNOWN INDICATION
     Dosage: UNK
     Dates: end: 20130513

REACTIONS (2)
  - Seizure [Unknown]
  - Generalised tonic-clonic seizure [Unknown]
